FAERS Safety Report 7507204 (Version 12)
Quarter: 2013Q3

REPORT INFORMATION
  Report Type: Spontaneous
  Country: US (occurrence: US)
  Receive Date: 20100729
  Receipt Date: 20130719
  Transmission Date: 20140515
  Serious: Yes (Hospitalization, Congenital Anomaly, Other)
  Sender: FDA-Public Use
  Company Number: US-PFIZER INC-2010092586

PATIENT
  Sex: Female
  Weight: 2.8 kg

DRUGS (15)
  1. ZOLOFT [Suspect]
     Indication: ANXIETY
     Dosage: UNK
     Route: 064
     Dates: start: 200203
  2. ZOLOFT [Suspect]
     Dosage: 50 MG DAILY
     Route: 064
  3. ZOLOFT [Suspect]
     Dosage: 100 MG DAILY
     Route: 064
  4. MONTELUKAST [Concomitant]
     Indication: ASTHMA
     Dosage: UNK
     Route: 064
  5. CLARINEX [Concomitant]
     Indication: ASTHMA
     Dosage: UNK
     Route: 064
  6. NASACORT [Concomitant]
     Indication: ASTHMA
     Dosage: UNK
     Route: 064
  7. CLOMID [Concomitant]
     Dosage: UNK
     Route: 064
  8. SINGULAIR [Concomitant]
     Dosage: UNK
     Route: 064
  9. AMOXICILLIN [Concomitant]
     Dosage: UNK
     Route: 064
  10. METROGEL [Concomitant]
     Dosage: UNK
     Route: 064
  11. PROPO-N/ APAP [Concomitant]
     Dosage: UNK
     Route: 064
  12. ZYRTEC [Concomitant]
     Dosage: UNK
     Route: 064
  13. PRENATE GT [Concomitant]
     Dosage: UNK
     Route: 064
  14. ADVIL [Concomitant]
     Dosage: UNK
     Route: 064
  15. TYLENOL [Concomitant]
     Dosage: UNK
     Route: 064

REACTIONS (35)
  - Foetal exposure during pregnancy [Unknown]
  - Fallot^s tetralogy [Unknown]
  - Aortic disorder [Unknown]
  - Urinary tract infection [Recovered/Resolved]
  - Pulmonary artery stenosis [Unknown]
  - Hydronephrosis [Recovering/Resolving]
  - Renal aplasia [Unknown]
  - Pulmonary vascular disorder [Unknown]
  - Ventricular septal defect [Unknown]
  - Patent ductus arteriosus [Recovered/Resolved]
  - Congenital coronary artery malformation [Unknown]
  - Pelvi-ureteric obstruction [Unknown]
  - Pulmonary hypoplasia [Unknown]
  - Otitis media acute [Unknown]
  - Congenital pulmonary artery anomaly [Unknown]
  - Cardiomegaly [Unknown]
  - Trigger finger [Unknown]
  - Splenomegaly [Unknown]
  - Bronchospasm [Recovered/Resolved]
  - Loss of consciousness [Recovered/Resolved]
  - Pneumonia [Recovered/Resolved]
  - Hypotonia [Unknown]
  - Eye allergy [Unknown]
  - Bronchitis [Recovered/Resolved]
  - Lymphadenopathy [Unknown]
  - Weight gain poor [Unknown]
  - Diarrhoea [Unknown]
  - Eczema [Unknown]
  - Constipation [Unknown]
  - Fall [Unknown]
  - Abdominal pain upper [Unknown]
  - Muscle strain [Unknown]
  - Pyrexia [Unknown]
  - Bundle branch block right [Unknown]
  - Sinus tachycardia [Unknown]
